FAERS Safety Report 9268368 (Version 1)
Quarter: 2013Q2

REPORT INFORMATION
  Report Type: Spontaneous
  Country: US (occurrence: US)
  Receive Date: 20130502
  Receipt Date: 20130502
  Transmission Date: 20140414
  Serious: Yes (Other)
  Sender: FDA-Public Use
  Company Number: US-ALEXION-A201202160

PATIENT
  Age: 24 Year
  Sex: Male

DRUGS (8)
  1. SOLIRIS 300MG [Suspect]
     Indication: PAROXYSMAL NOCTURNAL HAEMOGLOBINURIA
     Dosage: 600 MG, QW
     Route: 042
     Dates: start: 20100412, end: 20100503
  2. SOLIRIS 300MG [Suspect]
     Dosage: 900 MG, Q2W
     Dates: start: 20100511
  3. BACLOFEN [Concomitant]
     Indication: MUSCLE SPASMS
     Dosage: 20 MG, QID
  4. CAPSAICIN [Concomitant]
     Indication: PAIN
     Dosage: UNK
  5. IRON [Concomitant]
     Dosage: 325 MG, QD
  6. HYDROCHLOROTHIAZIDE [Concomitant]
     Dosage: 25 MG, QD
  7. MULTIVITAMIN [Concomitant]
     Dosage: UNK
  8. TRAMADOL [Concomitant]
     Indication: PAIN
     Dosage: 50 MG, PRN

REACTIONS (6)
  - Marrow hyperplasia [Not Recovered/Not Resolved]
  - Platelet count decreased [Recovering/Resolving]
  - Disease progression [Not Recovered/Not Resolved]
  - Myelodysplastic syndrome [Not Recovered/Not Resolved]
  - Haemoglobin decreased [Recovering/Resolving]
  - Pyrexia [Recovered/Resolved]
